FAERS Safety Report 24935568 (Version 2)
Quarter: 2025Q3

REPORT INFORMATION
  Report Type: Report from Study
  Country: BR (occurrence: BR)
  Receive Date: 20250206
  Receipt Date: 20250728
  Transmission Date: 20251020
  Serious: Yes (Hospitalization, Other)
  Sender: JOHNSON AND JOHNSON
  Company Number: BR-JNJFOC-20250203609

PATIENT
  Age: 28 Year
  Sex: Male
  Weight: 49 kg

DRUGS (3)
  1. REMICADE [Suspect]
     Active Substance: INFLIXIMAB
     Indication: Crohn^s disease
     Route: 041
     Dates: start: 202409
  2. ATENOLOL [Concomitant]
     Active Substance: ATENOLOL
     Indication: Cardiomegaly
  3. ZART H [Concomitant]
     Indication: Hypertension

REACTIONS (7)
  - Epilepsy [Unknown]
  - Endotracheal intubation [Unknown]
  - Intestinal obstruction [Unknown]
  - Infusion related reaction [Unknown]
  - Alopecia [Unknown]
  - Weight decreased [Unknown]
  - Stenosis [Unknown]

NARRATIVE: CASE EVENT DATE: 20241001
